FAERS Safety Report 16417576 (Version 1)
Quarter: 2019Q2

REPORT INFORMATION
  Report Type: Spontaneous
  Country: CN (occurrence: CN)
  Receive Date: 20190611
  Receipt Date: 20190611
  Transmission Date: 20190711
  Serious: Yes (Hospitalization, Other)
  Sender: FDA-Public Use
  Company Number: CN-GILEAD-2019-0412774

PATIENT
  Sex: Male

DRUGS (1)
  1. HEPSERA [Suspect]
     Active Substance: ADEFOVIR DIPIVOXIL
     Indication: CHRONIC HEPATITIS B
     Dosage: 1 DF (TABLET), QD
     Route: 048

REACTIONS (4)
  - Counterfeit product administered [Unknown]
  - Viral load increased [Unknown]
  - Asthenia [Unknown]
  - Drug resistance [Unknown]

NARRATIVE: CASE EVENT DATE: 201905
